FAERS Safety Report 5472088-0 (Version None)
Quarter: 2007Q3

REPORT INFORMATION
  Report Type: 
  Country: None (occurrence: None)
  Receive Date: 20070925
  Receipt Date: 20070912
  Transmission Date: 20080115
  Serious: Yes (Other)
  Sender: FDA-Public Use
  Company Number: 17498

PATIENT
  Age: 73 Year
  Sex: Female

DRUGS (3)
  1. VINCRISTINE [Suspect]
  2. CYTOXAN [Suspect]
  3. CLOZAPINE [Suspect]

REACTIONS (1)
  - GRANULOCYTOPENIA [None]
